FAERS Safety Report 22688773 (Version 4)
Quarter: 2024Q4

REPORT INFORMATION
  Report Type: Report from Study
  Country: US (occurrence: GB)
  Receive Date: 20230710
  Receipt Date: 20241008
  Transmission Date: 20250115
  Serious: Yes (Hospitalization)
  Sender: BAUSCH AND LOMB
  Company Number: US-BAUSCH-BL-2022-028309

PATIENT
  Age: 86 Year
  Sex: Male

DRUGS (1)
  1. SILIQ [Suspect]
     Active Substance: BRODALUMAB
     Indication: Psoriasis
     Dosage: 210/1.5 MG/ML, INJECT 210MG SUBCUTANEOUSLY ON WEEK 0, 1 AND 2 AS DIRECTED
     Route: 058
     Dates: start: 202212

REACTIONS (5)
  - Myocardial infarction [Unknown]
  - Wound [Unknown]
  - Product dose omission issue [Unknown]
  - Product use issue [Unknown]
  - Product packaging quantity issue [Unknown]

NARRATIVE: CASE EVENT DATE: 20221201
